FAERS Safety Report 6280304-0 (Version None)
Quarter: 2009Q3

REPORT INFORMATION
  Report Type: 
  Country: None (occurrence: None)
  Receive Date: 20090724
  Receipt Date: 20071012
  Transmission Date: 20100115
  Serious: Yes (Other)
  Sender: FDA-Public Use
  Company Number: US-ASTRAZENECA-2007UW18655

PATIENT
  Age: 19596 Day
  Sex: Male

DRUGS (7)
  1. SEROQUEL [Suspect]
     Dosage: 1/2 - 1 BID PRN, 1QHS
     Route: 048
     Dates: start: 20041230
  2. WELLBUTRIN [Concomitant]
     Dosage: 300 MG TO 450 MG
     Route: 048
     Dates: start: 20030718
  3. ZYPREXA [Concomitant]
     Indication: SLEEP DISORDER
     Dates: start: 20030612
  4. GLYBURIDE [Concomitant]
     Dosage: 5 MG TO 10 MG
     Dates: start: 19991101
  5. VIAGRA [Concomitant]
     Dosage: 100 MG PRN
     Dates: start: 20041231
  6. NAPROSYN [Concomitant]
     Dates: start: 20041231
  7. MS CONTIN [Concomitant]
     Dates: start: 20041231

REACTIONS (2)
  - DIABETES MELLITUS [None]
  - DIABETIC NEPHROPATHY [None]
